FAERS Safety Report 16708191 (Version 2)
Quarter: 2019Q3

REPORT INFORMATION
  Report Type: Report from Study
  Country: KR (occurrence: KR)
  Receive Date: 20190815
  Receipt Date: 20190827
  Transmission Date: 20191004
  Serious: Yes (Hospitalization)
  Sender: FDA-Public Use
  Company Number: KR-CELLTRION INC.-2019KR023769

PATIENT

DRUGS (15)
  1. RITUXIMAB (UNKNOWN) [Suspect]
     Active Substance: RITUXIMAB
     Dosage: 500 MG/M2 (885MG) QD; DAY 1 OF RA # 2 CYCLE EVERY 4 WEEKS
     Route: 042
     Dates: start: 20190618, end: 20190719
  2. NICETILE [Concomitant]
     Active Substance: ACETYLCARNITINE HYDROCHLORIDE
     Indication: PROPHYLAXIS
     Dosage: 500 MG, TID
     Route: 048
     Dates: start: 20190309
  3. RITUXIMAB (UNKNOWN) [Suspect]
     Active Substance: RITUXIMAB
     Indication: DIFFUSE LARGE B-CELL LYMPHOMA
     Dosage: A TOTAL OF 5 CYCLE INDUCTION CHEMOTHERAPY (500 MG/M2 + 5%DW 500 ML IVF)
     Route: 042
     Dates: start: 20190325, end: 20190522
  4. METHOTREXATE. [Suspect]
     Active Substance: METHOTREXATE
     Indication: CENTRAL NERVOUS SYSTEM LYMPHOMA
     Dosage: 500 MG/M2 + 5%DW 200 ML IV OVER 15 MINUTES
     Route: 042
  5. LEXAPRO [Concomitant]
     Active Substance: ESCITALOPRAM OXALATE
     Indication: PROPHYLAXIS
     Dosage: 10 MG, DAILY
     Route: 048
     Dates: start: 20190301
  6. ALPRAM [Concomitant]
     Active Substance: ALPRAZOLAM
     Indication: PROPHYLAXIS
     Dosage: 0.5 MG, DAILY
     Route: 048
     Dates: start: 20190301
  7. LYRICA [Concomitant]
     Active Substance: PREGABALIN
     Indication: PERIPHERAL SENSORY NEUROPATHY
     Dosage: 50 MG, BID
     Route: 048
     Dates: start: 20190717
  8. TARGIN [Concomitant]
     Active Substance: NALOXONE HYDROCHLORIDE\OXYCODONE HYDROCHLORIDE
     Indication: PERIPHERAL SENSORY NEUROPATHY
     Dosage: 1 DF (5/2.5 MG) BID
     Route: 048
     Dates: start: 20190715
  9. KEPPRA [Concomitant]
     Active Substance: LEVETIRACETAM
     Indication: PROPHYLAXIS
     Dosage: 500 MG, BID
     Route: 048
     Dates: start: 20190308
  10. CACEPIN [Concomitant]
     Indication: INSOMNIA
     Dosage: 25 MG, DAILY
     Route: 048
     Dates: start: 20190325
  11. METHOTREXATE. [Suspect]
     Active Substance: METHOTREXATE
     Dosage: 3000 MG/M2 + 5%DW 500 ML IVF OVER 3 HRS
     Route: 042
  12. CYTARABINE. [Suspect]
     Active Substance: CYTARABINE
     Indication: CENTRAL NERVOUS SYSTEM LYMPHOMA
     Dosage: 3000 MG/M2 (5310 MG QD, DAY 2 + DAY 3. ) EVERY 4 WEEKS
  13. RIVOTRIL [Concomitant]
     Active Substance: CLONAZEPAM
     Indication: PROPHYLAXIS
     Dosage: 0.75 MG, DAILY
     Route: 048
     Dates: start: 20190327
  14. BARACLUDE [Concomitant]
     Active Substance: ENTECAVIR
     Indication: ANTIVIRAL PROPHYLAXIS
     Dosage: 0.5 MG, DAILY
     Route: 048
     Dates: start: 20190325
  15. TRITTICO [Concomitant]
     Active Substance: TRAZODONE HYDROCHLORIDE
     Indication: PROPHYLAXIS
     Dosage: 50 MG, DAILY
     Route: 048
     Dates: start: 20190301

REACTIONS (1)
  - Pulmonary embolism [Not Recovered/Not Resolved]

NARRATIVE: CASE EVENT DATE: 20190806
